FAERS Safety Report 5949278-3 (Version None)
Quarter: 2008Q4

REPORT INFORMATION
  Report Type: 
  Country: None (occurrence: None)
  Receive Date: 20081111
  Receipt Date: 20081030
  Transmission Date: 20090506
  Serious: Yes (Other)
  Sender: FDA-Public Use
  Company Number: AU-AMGEN-QUU316447

PATIENT
  Sex: Male

DRUGS (2)
  1. ARANESP [Suspect]
     Indication: DIALYSIS
     Route: 065
     Dates: start: 20071001, end: 20080701
  2. EPREX [Concomitant]
     Dates: start: 20080701

REACTIONS (2)
  - EOSINOPHILIA [None]
  - RASH GENERALISED [None]
